FAERS Safety Report 11854905 (Version 1)
Quarter: 2015Q4

REPORT INFORMATION
  Report Type: Spontaneous
  Country: US (occurrence: None)
  Receive Date: 20151218
  Receipt Date: 20151218
  Transmission Date: 20160305
  Serious: Yes (Hospitalization)
  Sender: FDA-Public Use
  Company Number: None

PATIENT
  Age: 53 Year
  Sex: Female
  Weight: 127 kg

DRUGS (4)
  1. ERIBULIN 1.4MG/M2 [Suspect]
     Active Substance: ERIBULIN
     Indication: TRIPLE NEGATIVE BREAST CANCER
     Dosage: DAY 1 EACH 21 DAY CYCLE
     Route: 042
  2. ERIBULIN 1.4MG/M2 [Suspect]
     Active Substance: ERIBULIN
     Indication: BREAST CANCER METASTATIC
     Dosage: DAY 1 EACH 21 DAY CYCLE
     Route: 042
  3. EVEROLIMUS 5 MG [Suspect]
     Active Substance: EVEROLIMUS
     Indication: TRIPLE NEGATIVE BREAST CANCER
     Dosage: DAILY (D1-D21) ON 21 DAY CYCLE
     Route: 048
  4. EVEROLIMUS 5 MG [Suspect]
     Active Substance: EVEROLIMUS
     Indication: BREAST CANCER METASTATIC
     Dosage: DAILY (D1-D21) ON 21 DAY CYCLE
     Route: 048

REACTIONS (4)
  - Mass [None]
  - Lymphoedema [None]
  - Condition aggravated [None]
  - Abscess [None]

NARRATIVE: CASE EVENT DATE: 20151213
